FAERS Safety Report 9350325 (Version 1)
Quarter: 2013Q2

REPORT INFORMATION
  Report Type: Spontaneous
  Country: US (occurrence: None)
  Receive Date: 20130613
  Receipt Date: 20130613
  Transmission Date: 20140414
  Serious: Yes (Other)
  Sender: FDA-Public Use
  Company Number: None

PATIENT
  Age: 43 Year
  Sex: Female
  Weight: 64.41 kg

DRUGS (2)
  1. WELLBUTRIN XL [Suspect]
     Indication: NARCOLEPSY
     Route: 048
     Dates: start: 20130429, end: 20130508
  2. WELLBUTRIN XL [Suspect]
     Indication: HYPERSOMNIA
     Route: 048
     Dates: start: 20130429, end: 20130508

REACTIONS (1)
  - Drug hypersensitivity [None]
